FAERS Safety Report 22922986 (Version 2)
Quarter: 2025Q1

REPORT INFORMATION
  Report Type: Spontaneous
  Country: JP (occurrence: JP)
  Receive Date: 20230908
  Receipt Date: 20250124
  Transmission Date: 20250409
  Serious: Yes (Death, Hospitalization)
  Sender: ROCHE
  Company Number: JP-ROCHE-3416973

PATIENT
  Age: 67 Year
  Sex: Female

DRUGS (18)
  1. OBINUTUZUMAB [Suspect]
     Active Substance: OBINUTUZUMAB
     Indication: Follicular lymphoma
     Route: 065
  2. TOCILIZUMAB [Suspect]
     Active Substance: TOCILIZUMAB
     Indication: Post-acute COVID-19 syndrome
     Route: 065
  3. TOCILIZUMAB [Suspect]
     Active Substance: TOCILIZUMAB
     Indication: COVID-19 pneumonia
  4. BENDAMUSTINE [Suspect]
     Active Substance: BENDAMUSTINE
     Indication: Follicular lymphoma
     Route: 065
  5. MOLNUPIRAVIR [Concomitant]
     Active Substance: MOLNUPIRAVIR
  6. PREDNISOLONE [Concomitant]
     Active Substance: PREDNISOLONE
  7. SULFAMETHOXAZOLE [Concomitant]
     Active Substance: SULFAMETHOXAZOLE
  8. TRIMETHOPRIM [Concomitant]
     Active Substance: TRIMETHOPRIM
  9. METHENOLONE ACETATE [Concomitant]
     Active Substance: METHENOLONE ACETATE
  10. VONOPRAZAN FUMARATE [Concomitant]
     Active Substance: VONOPRAZAN FUMARATE
  11. ACYCLOVIR [Concomitant]
     Active Substance: ACYCLOVIR
  12. REMDESIVIR [Concomitant]
     Active Substance: REMDESIVIR
  13. BARICITINIB [Concomitant]
     Active Substance: BARICITINIB
  14. DEXAMETHASONE [Concomitant]
     Active Substance: DEXAMETHASONE
  15. DEXAMETHASONE [Concomitant]
     Active Substance: DEXAMETHASONE
  16. DEXAMETHASONE [Concomitant]
     Active Substance: DEXAMETHASONE
  17. DEXAMETHASONE [Concomitant]
     Active Substance: DEXAMETHASONE
  18. METHYLPREDNISOLONE [Concomitant]
     Active Substance: METHYLPREDNISOLONE

REACTIONS (5)
  - Off label use [Unknown]
  - Post-acute COVID-19 syndrome [Fatal]
  - COVID-19 pneumonia [Not Recovered/Not Resolved]
  - Tremor [Unknown]
  - Respiratory failure [Fatal]
